FAERS Safety Report 6917854-7 (Version None)
Quarter: 2010Q3

REPORT INFORMATION
  Report Type: 
  Country: None (occurrence: None)
  Receive Date: 20100810
  Receipt Date: 20090714
  Transmission Date: 20110219
  Serious: No
  Sender: FDA-Public Use
  Company Number: US-PFIZER INC-2009234133

PATIENT

DRUGS (2)
  1. TOVIAZ [Suspect]
  2. DETROL [Suspect]

REACTIONS (2)
  - ARTHRALGIA [None]
  - SKIN BURNING SENSATION [None]
